FAERS Safety Report 5022542-0 (Version None)
Quarter: 2006Q2

REPORT INFORMATION
  Report Type: 
  Country: None (occurrence: None)
  Receive Date: 20060605
  Receipt Date: 20060524
  Transmission Date: 20061013
  Serious: Yes (Death)
  Sender: FDA-Public Use
  Company Number: S06-UKI-01999-01

PATIENT
  Age: 83 Year
  Sex: Female

DRUGS (2)
  1. CITALOPRAM HYDROBROMIDE [Suspect]
     Dosage: 40 MG QD; PO
     Route: 048
     Dates: start: 20051101
  2. CITALOPRAM HYDROBROMIDE [Suspect]
     Dates: end: 20051101

REACTIONS (2)
  - CARDIAC DEATH [None]
  - SUDDEN DEATH [None]
